FAERS Safety Report 10829069 (Version 1)
Quarter: 2015Q1

REPORT INFORMATION
  Report Type: Report from Study
  Country: PR (occurrence: PR)
  Receive Date: 20150219
  Receipt Date: 20150219
  Transmission Date: 20150721
  Serious: No
  Sender: FDA-Public Use
  Company Number: PR-ABBVIE-14P-131-1281685-00

PATIENT
  Sex: Male

DRUGS (2)
  1. ALOES [Concomitant]
     Active Substance: ALOE
     Indication: PRODUCT USED FOR UNKNOWN INDICATION
  2. HUMIRA [Suspect]
     Active Substance: ADALIMUMAB
     Indication: PSORIASIS
     Route: 058
     Dates: start: 20140811

REACTIONS (3)
  - Drug administered at inappropriate site [Unknown]
  - Injury associated with device [Unknown]
  - Wrong technique in drug usage process [Unknown]
